FAERS Safety Report 23891015 (Version 1)
Quarter: 2024Q2

REPORT INFORMATION
  Report Type: Spontaneous
  Country: US (occurrence: US)
  Receive Date: 20240523
  Receipt Date: 20240523
  Transmission Date: 20240716
  Serious: No
  Sender: FDA-Public Use
  Company Number: US-SA-SAC20240305000366

PATIENT
  Age: 10 Year
  Sex: Male

DRUGS (3)
  1. ALTUVIIIO [Suspect]
     Active Substance: EFANESOCTOCOG ALFA
     Indication: Factor VIII deficiency
     Dosage: UNK
     Route: 040
  2. ALTUVIIIO [Suspect]
     Active Substance: EFANESOCTOCOG ALFA
     Indication: Immune tolerance induction
  3. EMICIZUMAB [Concomitant]
     Active Substance: EMICIZUMAB
     Indication: Factor VIII deficiency
     Dosage: PROPHYLACTIC TREATMENT

REACTIONS (1)
  - Product use in unapproved indication [Unknown]
